FAERS Safety Report 8939970 (Version 1)
Quarter: 2012Q4

REPORT INFORMATION
  Report Type: 
  Country: US (occurrence: US)
  Receive Date: 20121203
  Receipt Date: 20121203
  Transmission Date: 20130627
  Serious: No
  Sender: FDA-Public Use
  Company Number: US-PFIZER INC-2012298207

PATIENT
  Age: 83 Year
  Sex: Female
  Weight: 59.86 kg

DRUGS (4)
  1. XANAX [Suspect]
     Indication: ESSENTIAL TREMOR
     Dosage: 0.5 mg, 3x/day
     Route: 048
  2. XANAX [Suspect]
     Dosage: 1 mg, 3x/day
     Route: 048
     Dates: start: 20121011
  3. SYNTHROID [Concomitant]
     Indication: THYROID DISORDER
     Dosage: UNK
  4. LISINOPRIL [Concomitant]
     Indication: BLOOD PRESSURE HIGH
     Dosage: UNK

REACTIONS (4)
  - Drug tolerance [Unknown]
  - Headache [Unknown]
  - Dizziness [Unknown]
  - Drug ineffective for unapproved indication [Unknown]
